FAERS Safety Report 6654483-7 (Version None)
Quarter: 2010Q1

REPORT INFORMATION
  Report Type: 
  Country: None (occurrence: None)
  Receive Date: 20100326
  Receipt Date: 20100316
  Transmission Date: 20100710
  Serious: Yes (Hospitalization)
  Sender: FDA-Public Use
  Company Number: US-PFIZER INC-2010034415

PATIENT

DRUGS (1)
  1. GEODON [Suspect]
     Dosage: 40 MG, ONE DOSE

REACTIONS (2)
  - DYSURIA [None]
  - INFREQUENT BOWEL MOVEMENTS [None]
